FAERS Safety Report 18914602 (Version 2)
Quarter: 2021Q3

REPORT INFORMATION
  Report Type: Spontaneous
  Country: US (occurrence: US)
  Receive Date: 20210218
  Receipt Date: 20210727
  Transmission Date: 20211014
  Serious: Yes (Hospitalization)
  Sender: FDA-Public Use
  Company Number: US-TEVA-2021-US-1879732

PATIENT
  Age: 74 Year
  Sex: Female

DRUGS (26)
  1. TIZANIDINE. [Interacting]
     Active Substance: TIZANIDINE
     Indication: BACK PAIN
     Dosage: THREE TIMES A DAY (FROM DAY 9?DAY 11 OF ADMISSION)
     Route: 048
  2. LIDOCAINE. [Concomitant]
     Active Substance: LIDOCAINE
     Indication: MUSCLE SPASMS
  3. BACLOFEN. [Suspect]
     Active Substance: BACLOFEN
     Indication: BACK PAIN
     Dosage: 30 MILLIGRAM DAILY; THREE TIMES A DAY (FROM DAY 14?DAY 21 OF ADMISSION)
     Route: 048
  4. LABETALOL [Suspect]
     Active Substance: LABETALOL\LABETALOL HYDROCHLORIDE
     Dosage: 600 MILLIGRAM DAILY; FROM DAY 11?DAY 19 OF ADMISSION
     Route: 048
  5. DABIGATRAN [Suspect]
     Active Substance: DABIGATRAN
     Indication: ATRIAL FIBRILLATION
     Dosage: 300 MILLIGRAM DAILY; FROM DAY 12?DAY 29 OF ADMISSION
     Route: 048
  6. ACETAMINOPHEN. [Suspect]
     Active Substance: ACETAMINOPHEN
     Indication: MUSCLE SPASMS
  7. OXYCODONE [Concomitant]
     Active Substance: OXYCODONE
     Indication: BACK PAIN
     Dosage: 30 MILLIGRAM DAILY; THREE TIMES A DAY (FROM DAY 19?DAY 29 OF ADMISSION)
     Route: 048
  8. OXYCODONE [Concomitant]
     Active Substance: OXYCODONE
     Indication: BACK PAIN
     Dosage: 60 MILLIGRAM DAILY; FROM DAY 22?DAY 29 OF ADMISSION
     Route: 048
  9. AMLODIPINE [Suspect]
     Active Substance: AMLODIPINE BESYLATE
     Indication: HYPERTENSION
     Dosage: 5 MILLIGRAM DAILY; FROM DAY 12?DAY 29 OF ADMISSION
     Route: 048
  10. BORTEZOMIB. [Interacting]
     Active Substance: BORTEZOMIB
     Indication: PLASMA CELL MYELOMA
     Dosage: 1.3 MG/M2; STARTED ON DAY 16 OF HOSPITALISATION (ON DAYS 1, 4 AND 8)
     Route: 058
  11. ACETAMINOPHEN. [Suspect]
     Active Substance: ACETAMINOPHEN
     Indication: BACK PAIN
     Dosage: AS NEEDED
     Route: 048
  12. DEXAMETHASONE. [Concomitant]
     Active Substance: DEXAMETHASONE
     Dosage: 12 MILLIGRAM DAILY; FROM DAY 21?DAY 28 OF ADMISISON
     Route: 048
  13. LABETALOL [Suspect]
     Active Substance: LABETALOL\LABETALOL HYDROCHLORIDE
     Indication: HYPERTENSION
     Dosage: 400 MILLIGRAM DAILY; FROM DAY 0?DAY 11 OF ADMISSION
     Route: 048
  14. LIDOCAINE. [Concomitant]
     Active Substance: LIDOCAINE
     Indication: BACK PAIN
     Dosage: FROM DAY 14?DAY 19 OF ADMISSION
     Route: 062
  15. DEXAMETHASONE. [Concomitant]
     Active Substance: DEXAMETHASONE
     Indication: PLASMA CELL MYELOMA
     Dosage: 4 MILLIGRAM DAILY; FROM DAY 16?DAY 20 OF ADMISSION
     Route: 042
  16. ACICLOVIR [Suspect]
     Active Substance: ACYCLOVIR
     Indication: INFECTION PROPHYLAXIS
     Dosage: 800 MILLIGRAM DAILY; FROM DAY 16?DAY 29 OF ADMISSION
     Route: 048
  17. BACLOFEN. [Suspect]
     Active Substance: BACLOFEN
     Indication: MUSCLE SPASMS
  18. ACETAMINOPHEN/HYDROCODONE [Suspect]
     Active Substance: ACETAMINOPHEN\HYDROCODONE
     Indication: BACK PAIN
     Dosage: AS NEEDED (FROM DAY 2?DAY 14 OF ADMISSION)
     Route: 048
  19. HYDRALAZINE [Interacting]
     Active Substance: HYDRALAZINE HYDROCHLORIDE
     Indication: HYPERTENSION
     Dosage: 50 MILLIGRAM DAILY; FROM DAY 11?DAY 29 OF ADMISSION
     Route: 048
  20. PANTOPRAZOLE [Suspect]
     Active Substance: PANTOPRAZOLE
     Indication: GASTROINTESTINAL DISORDER PROPHYLAXIS
     Dosage: 40 MILLIGRAM DAILY; FROM DAY 3?DAY 29 OF ADMISSION
     Route: 048
  21. LABETALOL [Suspect]
     Active Substance: LABETALOL\LABETALOL HYDROCHLORIDE
     Dosage: 400 MILLIGRAM DAILY; FROM DAY 19?DAY 29 OF ADMISSION
     Route: 048
  22. DEXAMETHASONE. [Concomitant]
     Active Substance: DEXAMETHASONE
     Indication: MUSCLE SPASMS
     Dosage: 16 MILLIGRAM DAILY; FROM DAY 21?DAY 28 OF ADMISISON
     Route: 048
  23. TIZANIDINE. [Interacting]
     Active Substance: TIZANIDINE
     Indication: MUSCLE SPASMS
  24. METHADONE [Concomitant]
     Active Substance: METHADONE HYDROCHLORIDE
     Indication: BACK PAIN
     Dosage: 20 MILLIGRAM DAILY; FROM DAY 10?DAY 29 OF ADMISSION
     Route: 048
  25. METHADONE [Concomitant]
     Active Substance: METHADONE HYDROCHLORIDE
     Indication: MUSCLE SPASMS
     Dosage: 15 MILLIGRAM DAILY; FROM DAY 10?DAY 29 OF ADMISSION
     Route: 048
  26. DEXAMETHASONE. [Concomitant]
     Active Substance: DEXAMETHASONE
     Indication: BACK PAIN
     Dosage: 20 MILLIGRAM DAILY;
     Route: 042

REACTIONS (2)
  - Hepatic steatosis [Recovering/Resolving]
  - Drug interaction [Recovering/Resolving]
